FAERS Safety Report 10431724 (Version 1)
Quarter: 2014Q3

REPORT INFORMATION
  Report Type: Report from Study
  Country: RO (occurrence: RO)
  Receive Date: 20140904
  Receipt Date: 20140904
  Transmission Date: 20150326
  Serious: Yes (Hospitalization)
  Sender: FDA-Public Use
  Company Number: RO-TAKEDA-2014TUS008166

PATIENT
  Age: 73 Year
  Sex: Male
  Weight: 75 kg

DRUGS (19)
  1. BLINDED ALLOPURINOL [Suspect]
     Active Substance: ALLOPURINOL
     Indication: GOUT
     Dosage: 120 MG, QD
     Route: 048
     Dates: start: 20140605
  2. BLINDED FEBUXOSTAT [Suspect]
     Active Substance: FEBUXOSTAT
     Indication: HYPERURICAEMIA
  3. PARACETAMOL [Concomitant]
     Active Substance: ACETAMINOPHEN
     Indication: SPONDYLITIS
     Dosage: 500 MG, 1 IN 1 AS REQUIRED
     Route: 048
     Dates: start: 1973
  4. SIOFOR [Concomitant]
     Active Substance: METFORMIN HYDROCHLORIDE
     Indication: DIABETES MELLITUS
     Dosage: 500 MG, BID
     Route: 048
     Dates: start: 2004
  5. METOSUCCINAT [Concomitant]
     Indication: HYPERTENSION
     Dosage: 95 MG, QD
     Route: 048
     Dates: start: 2000
  6. NUROFEN [Concomitant]
     Active Substance: IBUPROFEN
     Dosage: 200 MG, QD
     Route: 048
     Dates: start: 20140806, end: 20140811
  7. BLINDED ALLOPURINOL [Suspect]
     Active Substance: ALLOPURINOL
     Indication: HYPERURICAEMIA
  8. ENAPIL [Concomitant]
     Indication: HYPERTENSION
     Dosage: 10 MG, BID
     Route: 048
     Dates: start: 2000
  9. NICERGOLINE [Concomitant]
     Active Substance: NICERGOLINE
     Indication: VERTIGO
     Dosage: 30 MG, QD
     Route: 048
     Dates: start: 2012
  10. BLINDED FEBUXOSTAT [Suspect]
     Active Substance: FEBUXOSTAT
     Indication: GOUT
     Dosage: 120 MG, QD
     Route: 048
     Dates: start: 20140605
  11. ASPENTER [Concomitant]
     Active Substance: ASPIRIN
     Indication: MYOCARDIAL ISCHAEMIA
     Dosage: 75 MG, QD
     Route: 048
     Dates: start: 2012
  12. TEOTARD [Concomitant]
     Active Substance: THEOPHYLLINE
     Indication: CHRONIC OBSTRUCTIVE PULMONARY DISEASE
     Dosage: 350 MG, BID
     Route: 048
     Dates: start: 2000
  13. DICLOFENAC [Concomitant]
     Active Substance: DICLOFENAC
     Indication: SPONDYLITIS
     Dosage: 50 MG,1 IN 1 AS REQUIRED
     Route: 048
     Dates: start: 1973
  14. GABAPENTIN. [Concomitant]
     Active Substance: GABAPENTIN
     Indication: DIABETIC NEUROPATHY
     Dosage: 300 MG, BID
     Route: 048
     Dates: start: 2012
  15. COAXIL [Concomitant]
     Indication: DEPRESSION
     Dosage: 12.5 MG, BID
     Route: 048
     Dates: start: 2011
  16. COLCHICINE. [Concomitant]
     Active Substance: COLCHICINE
     Indication: GOUT
     Dosage: 1 MG, QD
     Route: 048
     Dates: start: 201408
  17. NITROGLYCERINE [Concomitant]
     Active Substance: NITROGLYCERIN
     Indication: MYOCARDIAL ISCHAEMIA
     Dosage: 0.5 MG, QD
     Route: 048
     Dates: start: 2012
  18. DOXEPIN [Concomitant]
     Active Substance: DOXEPIN
     Indication: DEPRESSION
     Dosage: 25 MG, QD
     Route: 048
     Dates: start: 2011
  19. BETADINE                           /00080001/ [Concomitant]
     Indication: PROPHYLAXIS
     Dosage: 1 DF, QD
     Route: 061
     Dates: start: 20140805, end: 20140811

REACTIONS (1)
  - Dermal cyst [Recovered/Resolved with Sequelae]

NARRATIVE: CASE EVENT DATE: 20140801
